FAERS Safety Report 6041835-1 (Version None)
Quarter: 2009Q1

REPORT INFORMATION
  Report Type: 
  Country: None (occurrence: None)
  Receive Date: 20090116
  Receipt Date: 20090105
  Transmission Date: 20090719
  Serious: Yes (Hospitalization, Other)
  Sender: FDA-Public Use
  Company Number: US-PFIZER INC-2008096476

PATIENT
  Sex: Male

DRUGS (18)
  1. ZYVOX [Suspect]
     Indication: DECUBITUS ULCER
     Dosage: 600 MG, 2X/DAY
     Route: 042
     Dates: start: 20081113
  2. ZYVOX [Suspect]
     Dosage: UNK
     Route: 048
     Dates: end: 20081209
  3. VICODIN [Concomitant]
     Dosage: UNK
  4. TENORMIN [Concomitant]
     Dosage: UNK
  5. CELEXA [Concomitant]
  6. HEPARIN [Concomitant]
  7. INSULIN LENTE [Concomitant]
  8. NOVOLOG [Concomitant]
  9. PREVACID [Concomitant]
  10. REGLAN [Concomitant]
     Dosage: UNK
  11. METRONIDAZOLE [Concomitant]
  12. SODIUM CHLORIDE [Concomitant]
  13. KEFLEX [Concomitant]
  14. VALIUM [Concomitant]
     Dosage: UNK
  15. LANTUS [Concomitant]
     Dosage: UNK
  16. METFORMIN [Concomitant]
     Dosage: UNK
  17. DITROPAN XL [Concomitant]
     Dosage: UNK
  18. PROMETHAZINE [Concomitant]

REACTIONS (6)
  - DEHYDRATION [None]
  - DIABETES MELLITUS [None]
  - EXTRAVASATION [None]
  - HEART RATE INCREASED [None]
  - HYPERGLYCAEMIA [None]
  - URINARY TRACT INFECTION [None]
